FAERS Safety Report 6061843-4 (Version None)
Quarter: 2009Q1

REPORT INFORMATION
  Report Type: 
  Country: None (occurrence: None)
  Receive Date: 20090202
  Receipt Date: 20090126
  Transmission Date: 20090719
  Serious: Yes (Other)
  Sender: FDA-Public Use
  Company Number: US-BAYER-200910245BCC

PATIENT
  Age: 88 Year
  Sex: Female
  Weight: 63 kg

DRUGS (7)
  1. ASPIRIN [Suspect]
     Indication: CEREBROVASCULAR ACCIDENT
     Dosage: TOTAL DAILY DOSE: 81 MG  UNIT DOSE: 81 MG
     Dates: start: 19990422, end: 20090121
  2. ASPIRIN [Suspect]
     Dosage: TOTAL DAILY DOSE: 81 MG  UNIT DOSE: 81 MG
     Dates: start: 20090123
  3. PREVACID [Concomitant]
  4. TOPROL-XL [Concomitant]
  5. UNKNOWN VITAMIN [Concomitant]
  6. ASPIRIN [Concomitant]
  7. ASPERCREME [Concomitant]

REACTIONS (5)
  - ABDOMINAL PAIN UPPER [None]
  - DEAFNESS [None]
  - DIZZINESS [None]
  - HEADACHE [None]
  - NAUSEA [None]
